FAERS Safety Report 9034648 (Version 2)
Quarter: 2013Q1

REPORT INFORMATION
  Report Type: Spontaneous
  Country: US (occurrence: US)
  Receive Date: 20130128
  Receipt Date: 20130314
  Transmission Date: 20140127
  Serious: Yes (Death)
  Sender: FDA-Public Use
  Company Number: US-GLAXOSMITHKLINE-A1009325A

PATIENT
  Age: 78 Year
  Sex: Male

DRUGS (14)
  1. ADVAIR [Suspect]
     Indication: DYSPNOEA
     Dosage: 1PUFF TWICE PER DAY
     Route: 055
  2. ASPIRIN [Concomitant]
  3. DIGOXIN [Concomitant]
  4. DOXAZOSIN [Concomitant]
  5. FUROSEMIDE [Concomitant]
  6. LISINOPRIL [Concomitant]
  7. PREDNISONE [Concomitant]
  8. MAGNESIUM OXIDE [Concomitant]
  9. METOPROLOL [Concomitant]
  10. COUMADIN [Concomitant]
     Indication: ATRIAL FIBRILLATION
  11. SIMVASTATIN [Concomitant]
  12. COMBIVENT [Concomitant]
  13. NEBULIZER [Concomitant]
  14. INSULIN [Concomitant]

REACTIONS (6)
  - Cardiac failure congestive [Fatal]
  - Atrial fibrillation [Fatal]
  - Myocardial infarction [Fatal]
  - Pneumonia [Unknown]
  - Chronic obstructive pulmonary disease [Fatal]
  - Chronic obstructive pulmonary disease [Unknown]
